FAERS Safety Report 8298496-0 (Version None)
Quarter: 2012Q2

REPORT INFORMATION
  Report Type: 
  Country: None (occurrence: None)
  Receive Date: 20120419
  Receipt Date: 20120113
  Transmission Date: 20120825
  Serious: No
  Sender: FDA-Public Use
  Company Number: US-ABBOTT-12P-163-0893394-00

PATIENT
  Sex: Male
  Weight: 40.406 kg

DRUGS (1)
  1. LUPRON DEPOT-PED [Suspect]
     Indication: PRECOCIOUS PUBERTY
     Dates: start: 20100901

REACTIONS (6)
  - EMOTIONAL DISORDER [None]
  - INCREASED APPETITE [None]
  - FEELING ABNORMAL [None]
  - WEIGHT INCREASED [None]
  - DISTURBANCE IN ATTENTION [None]
  - CRYING [None]
